FAERS Safety Report 6631503-7 (Version None)
Quarter: 2010Q1

REPORT INFORMATION
  Report Type: 
  Country: None (occurrence: None)
  Receive Date: 20100312
  Receipt Date: 20100227
  Transmission Date: 20100710
  Serious: Yes (Other)
  Sender: FDA-Public Use
  Company Number: PHHY2009JP52618

PATIENT

DRUGS (13)
  1. LAMISIL [Suspect]
     Dosage: 125 MG DAILY
     Route: 048
     Dates: start: 20090827, end: 20091106
  2. TIZANIDINE HCL [Suspect]
     Indication: BACK PAIN
     Dosage: 3 MG DAILY
     Route: 048
     Dates: start: 20081218, end: 20100113
  3. MOBIC [Suspect]
     Indication: BACK PAIN
     Dosage: 10 MG DAILY
     Route: 048
     Dates: start: 20081225, end: 20100113
  4. GASMOTIN [Suspect]
     Indication: GASTRITIS
     Dosage: 15 MG DAILY
     Route: 048
     Dates: start: 20081218, end: 20100113
  5. MEXILETINE HYDROCHLORIDE [Suspect]
     Indication: CANCER PAIN
     Dosage: 150 MG DAILY
     Route: 048
     Dates: start: 20090312, end: 20100113
  6. SERENAL [Suspect]
     Indication: ANXIETY DISORDER
     Dosage: 10 MG DAILY
     Route: 048
     Dates: start: 20090305, end: 20100113
  7. PREDNISOLONE [Concomitant]
     Indication: PLASMACYTOMA
     Dosage: 5 MG
     Route: 048
  8. GASPORT [Concomitant]
     Indication: REFLUX OESOPHAGITIS
     Dosage: 40 MG
     Route: 048
     Dates: start: 20090129, end: 20100113
  9. MAGNESIUM OXIDE [Concomitant]
     Indication: CONSTIPATION
     Dosage: 1980 MG
     Route: 048
     Dates: start: 20081211
  10. DEPAS [Concomitant]
     Indication: ANXIETY DISORDER
     Dosage: 0.5 MG
     Route: 048
     Dates: start: 20081218
  11. TRYPTANOL [Concomitant]
     Indication: CANCER PAIN
     Dosage: 30 MG
     Route: 048
     Dates: start: 20090312
  12. GLYCERIN [Concomitant]
     Indication: CONSTIPATION
     Dosage: 60 MG
     Route: 054
  13. DUROTEP [Concomitant]
     Indication: CANCER PAIN
     Dosage: 16.8 MG
     Route: 062
     Dates: start: 20090118

REACTIONS (3)
  - GENERAL PHYSICAL HEALTH DETERIORATION [None]
  - HEPATIC FUNCTION ABNORMAL [None]
  - PNEUMONIA [None]
